FAERS Safety Report 13402682 (Version 2)
Quarter: 2017Q2

REPORT INFORMATION
  Report Type: Spontaneous
  Country: US (occurrence: US)
  Receive Date: 20170404
  Receipt Date: 20170404
  Transmission Date: 20170830
  Serious: No
  Sender: FDA-Public Use
  Company Number: US-ROCHE-1823132

PATIENT

DRUGS (10)
  1. CLARIDINE [Concomitant]
     Dosage: OUTSIDE
     Route: 065
  2. LORAZEPAM. [Concomitant]
     Active Substance: LORAZEPAM
     Route: 048
  3. PRILOSEC [Concomitant]
     Active Substance: OMEPRAZOLE MAGNESIUM
     Route: 048
     Dates: start: 20140529
  4. PAROXETINE HCL [Concomitant]
     Active Substance: PAROXETINE HYDROCHLORIDE
     Route: 048
     Dates: start: 20150513
  5. ANASTROLE [Concomitant]
     Route: 048
     Dates: start: 20150513
  6. COMPAZINE [Concomitant]
     Active Substance: PROCHLORPERAZINE MALEATE
     Indication: NAUSEA
     Route: 048
     Dates: start: 20140801
  7. IBRANCE [Concomitant]
     Active Substance: PALBOCICLIB
     Dosage: 28 DAYS SUPPLY
     Route: 065
  8. ROCEPHIN [Suspect]
     Active Substance: CEFTRIAXONE SODIUM
     Indication: PRODUCT USED FOR UNKNOWN INDICATION
     Route: 065
  9. PALBOCICLIB [Concomitant]
     Active Substance: PALBOCICLIB
     Dosage: 125 MG CAPSULE(S) TAKA 1 PO DAILY, DISPERNSE^ 21, RELILLS: 6,CANCER CENTER OF KANSAS 39598, 818 N EM
     Route: 048
  10. GABAPENTIN. [Concomitant]
     Active Substance: GABAPENTIN
     Dosage: 3 CAPSULES, DAILY
     Route: 048
     Dates: start: 20150318

REACTIONS (1)
  - Drug hypersensitivity [Unknown]
